FAERS Safety Report 9241142 (Version 4)
Quarter: 2013Q2

REPORT INFORMATION
  Report Type: Spontaneous
  Country: JP (occurrence: JP)
  Receive Date: 20130419
  Receipt Date: 20130617
  Transmission Date: 20140414
  Serious: Yes (Other)
  Sender: FDA-Public Use
  Company Number: JP-009507513-1304JPN008896

PATIENT
  Age: 68 Year
  Sex: Male
  Weight: 69 kg

DRUGS (4)
  1. JANUVIA TABLETS 25MG [Suspect]
     Dosage: 25 MG, QD
     Route: 048
     Dates: start: 20111015, end: 20130412
  2. METGLUCO [Suspect]
     Dosage: 250 MG, TID
     Route: 048
     Dates: start: 20110806, end: 20130412
  3. ADALAT CR [Suspect]
     Dosage: 40 MG, QD
     Route: 048
     Dates: start: 20060415, end: 20130422
  4. POLYFUL [Suspect]
     Dosage: 500 MG, TID
     Route: 048
     Dates: start: 20120914, end: 20130422

REACTIONS (1)
  - Rhabdomyolysis [Recovering/Resolving]
